FAERS Safety Report 8283355-X (Version None)
Quarter: 2012Q2

REPORT INFORMATION
  Report Type: 
  Country: None (occurrence: None)
  Receive Date: 20120413
  Receipt Date: 20120410
  Transmission Date: 20120825
  Serious: No
  Sender: FDA-Public Use
  Company Number: US-B.I. PHARMACEUTICALS,INC./RIDGEFIELD-2012-BP-06764BP

PATIENT
  Sex: Female

DRUGS (2)
  1. TRADJENTA [Suspect]
     Dosage: 20 MG
     Dates: start: 20120409, end: 20120409
  2. TRADJENTA [Suspect]

REACTIONS (1)
  - OVERDOSE [None]
